FAERS Safety Report 18948809 (Version 1)
Quarter: 2021Q1

REPORT INFORMATION
  Report Type: Spontaneous
  Country: SA (occurrence: SA)
  Receive Date: 20210227
  Receipt Date: 20210227
  Transmission Date: 20210420
  Serious: Yes (Hospitalization, Other)
  Sender: FDA-Public Use
  Company Number: SA-LUPIN PHARMACEUTICALS INC.-2021-02394

PATIENT
  Age: 45 Year
  Sex: Male

DRUGS (11)
  1. MIDAZOLAM. [Concomitant]
     Active Substance: MIDAZOLAM
     Indication: SEDATIVE THERAPY
     Dosage: UNK, 1?2.5 MG/HOUR (STOPPED)
     Route: 065
     Dates: start: 20190104, end: 20190115
  2. OMEPRAZOLE. [Concomitant]
     Active Substance: OMEPRAZOLE
     Indication: STRESS ULCER
     Dosage: 40 MILLIGRAM
     Route: 042
     Dates: start: 20190104
  3. ENOXAPARIN [Concomitant]
     Active Substance: ENOXAPARIN
     Indication: THROMBOSIS PROPHYLAXIS
     Dosage: 40 MILLIGRAM
     Route: 058
     Dates: start: 20190104
  4. LINEZOLID. [Suspect]
     Active Substance: LINEZOLID
     Indication: PNEUMONIA
     Dosage: 600 MILLIGRAM, BID
     Route: 042
     Dates: start: 20190108, end: 20190120
  5. CARBAMAZEPINE. [Concomitant]
     Active Substance: CARBAMAZEPINE
     Indication: MENTAL DISORDER
     Dosage: 200 MILLIGRAM, BID
     Route: 065
     Dates: start: 201901
  6. FENTANYL. [Interacting]
     Active Substance: FENTANYL
     Indication: MECHANICAL VENTILATION
     Dosage: UNK, INFUSIONS OF 50?100 UG/HOUR
     Route: 042
     Dates: start: 20190104, end: 20190115
  7. OMEPRAZOLE. [Concomitant]
     Active Substance: OMEPRAZOLE
     Indication: PROPHYLAXIS
  8. PIPERACILLIN/TAZOBACTAM [Concomitant]
     Active Substance: PIPERACILLIN SODIUM\TAZOBACTAM SODIUM
     Indication: PNEUMONIA
     Dosage: 4.5 MILLIGRAM, QID (STOPPED)
     Route: 042
     Dates: start: 20190107, end: 20190108
  9. MIRTAZAPINE. [Interacting]
     Active Substance: MIRTAZAPINE
     Indication: MENTAL DISORDER
     Dosage: 15 MILLIGRAM, QD
     Route: 065
     Dates: end: 201901
  10. MAPROTILINE [Interacting]
     Active Substance: MAPROTILINE
     Indication: MENTAL DISORDER
     Route: 065
     Dates: end: 201901
  11. IMIPENEM AND CILASTATIN [Concomitant]
     Active Substance: CILASTATIN SODIUM\IMIPENEM
     Indication: SEDATIVE THERAPY
     Dosage: 1 GRAM, TID
     Route: 042
     Dates: start: 20190108

REACTIONS (2)
  - Drug interaction [Unknown]
  - Serotonin syndrome [Recovering/Resolving]

NARRATIVE: CASE EVENT DATE: 20190120
